FAERS Safety Report 11791854 (Version 1)
Quarter: 2015Q4

REPORT INFORMATION
  Report Type: Spontaneous
  Country: ES (occurrence: ES)
  Receive Date: 20151201
  Receipt Date: 20151201
  Transmission Date: 20160305
  Serious: Yes (Death, Other)
  Sender: FDA-Public Use
  Company Number: PHHY2015ES155200

PATIENT
  Age: 69 Year
  Sex: Female

DRUGS (5)
  1. VANCOMYCIN [Suspect]
     Active Substance: VANCOMYCIN
     Indication: VASCULAR GRAFT COMPLICATION
     Route: 065
  2. IMIPENEM [Suspect]
     Active Substance: IMIPENEM
     Indication: VASCULAR GRAFT COMPLICATION
     Dosage: 1 G, UNK
     Route: 042
  3. TEICOPLANIN [Suspect]
     Active Substance: TEICOPLANIN
     Indication: ACUTE KIDNEY INJURY
     Route: 065
  4. FOSFOMYCIN [Suspect]
     Active Substance: FOSFOMYCIN
     Indication: VASCULAR GRAFT COMPLICATION
     Dosage: 2 G, UNK
     Route: 042
  5. LINEZOLID. [Suspect]
     Active Substance: LINEZOLID
     Indication: BACTERAEMIA
     Route: 065

REACTIONS (3)
  - Hypernatraemia [Fatal]
  - Drug ineffective [Unknown]
  - Acute kidney injury [Fatal]
